FAERS Safety Report 11293418 (Version 3)
Quarter: 2015Q3

REPORT INFORMATION
  Report Type: Spontaneous
  Country: US (occurrence: US)
  Receive Date: 20150722
  Receipt Date: 20150908
  Transmission Date: 20151125
  Serious: Yes (Other)
  Sender: FDA-Public Use
  Company Number: US-JAZZ-2013-US-005060

PATIENT
  Age: 49 Year
  Sex: Male

DRUGS (26)
  1. BACLOFEN. [Concomitant]
     Active Substance: BACLOFEN
     Indication: INTERVERTEBRAL DISC PROTRUSION
     Dosage: UNK
  2. ASPIRIN. [Concomitant]
     Active Substance: ASPIRIN
     Indication: CORONARY ARTERY DISEASE
     Dosage: UNK
  3. LOSARTAN. [Concomitant]
     Active Substance: LOSARTAN
     Indication: HYPERTENSION
     Dosage: UNK
  4. CARDENE [Concomitant]
     Active Substance: NICARDIPINE HYDROCHLORIDE
     Indication: HYPERTENSION
     Dosage: UNK
  5. OXYCODONE [Concomitant]
     Active Substance: OXYCODONE
     Indication: PAIN
     Dosage: UNK
     Dates: start: 20131106
  6. AMITRIPTYLINE HCL [Concomitant]
     Active Substance: AMITRIPTYLINE
     Indication: SLEEP DISORDER
     Dosage: UNK
     Dates: start: 20130919
  7. ADVAIR HFA [Concomitant]
     Active Substance: FLUTICASONE PROPIONATE\SALMETEROL XINAFOATE
     Indication: ASTHMA
     Dosage: UNK
  8. AMLODIPINE BESYLATE. [Concomitant]
     Active Substance: AMLODIPINE BESYLATE
     Indication: HYPERTENSION
     Dosage: UNK
  9. NUVIGIL [Concomitant]
     Active Substance: ARMODAFINIL
     Indication: NARCOLEPSY
     Dosage: UNK
  10. PROVIGIL [Concomitant]
     Active Substance: MODAFINIL
     Indication: NARCOLEPSY
     Dosage: UNK
  11. DOXYCYCLINE. [Concomitant]
     Active Substance: DOXYCYCLINE
     Indication: POST PROCEDURAL INFECTION
     Dosage: UNK
  12. OXYMORPHONE [Concomitant]
     Active Substance: OXYMORPHONE
     Indication: PAIN
     Dosage: UNK
  13. CARVEDILOL. [Concomitant]
     Active Substance: CARVEDILOL
     Indication: PRODUCT USED FOR UNKNOWN INDICATION
     Dosage: UNK
  14. FOLIC ACID. [Concomitant]
     Active Substance: FOLIC ACID
     Indication: PRODUCT USED FOR UNKNOWN INDICATION
     Dosage: UNK
  15. CORTISONE ACETATE. [Concomitant]
     Active Substance: CORTISONE ACETATE
     Indication: PRODUCT USED FOR UNKNOWN INDICATION
     Dosage: UNK
     Dates: start: 20130517
  16. OMEPRAZOLE. [Concomitant]
     Active Substance: OMEPRAZOLE
     Indication: PRODUCT USED FOR UNKNOWN INDICATION
     Dosage: UNK
  17. XYREM [Suspect]
     Active Substance: SODIUM OXYBATE
     Indication: NARCOLEPSY
     Dosage: 2.25 G, BID
     Route: 048
     Dates: start: 201201, end: 2012
  18. XYREM [Suspect]
     Active Substance: SODIUM OXYBATE
     Dosage: 4.5 G, BID
     Route: 048
     Dates: start: 201204
  19. HYDRALAZINE [Concomitant]
     Active Substance: HYDRALAZINE HYDROCHLORIDE
     Indication: HYPERTENSION
     Dosage: UNK
  20. NASONEX [Concomitant]
     Active Substance: MOMETASONE FUROATE
     Indication: ASTHMA
     Dosage: UNK
  21. XYREM [Suspect]
     Active Substance: SODIUM OXYBATE
     Dosage: DOSE ADJUSTMENTS
     Route: 048
  22. CHLORTHALIDONE. [Concomitant]
     Active Substance: CHLORTHALIDONE
     Indication: HYPERTENSION
     Dosage: UNK
  23. WELLBUTRIN [Concomitant]
     Active Substance: BUPROPION HYDROCHLORIDE
     Indication: BIPOLAR DISORDER
     Dosage: UNK
  24. VENTOLIN [Concomitant]
     Active Substance: ALBUTEROL SULFATE
     Indication: ASTHMA
     Dosage: UNK
  25. LISINOPRIL. [Concomitant]
     Active Substance: LISINOPRIL
     Indication: PRODUCT USED FOR UNKNOWN INDICATION
     Dosage: UNK
  26. NAPROXEN. [Concomitant]
     Active Substance: NAPROXEN
     Indication: PRODUCT USED FOR UNKNOWN INDICATION
     Dosage: UNK

REACTIONS (5)
  - Pain [Unknown]
  - Foot operation [Recovering/Resolving]
  - Exostosis [Unknown]
  - Tendon rupture [Unknown]
  - Thrombosis [Not Recovered/Not Resolved]

NARRATIVE: CASE EVENT DATE: 201312
